FAERS Safety Report 9912954 (Version 2)
Quarter: 2014Q2

REPORT INFORMATION
  Report Type: Spontaneous
  Country: US (occurrence: US)
  Receive Date: 20140220
  Receipt Date: 20140409
  Transmission Date: 20141212
  Serious: No
  Sender: FDA-Public Use
  Company Number: US-PFIZER INC-2014045357

PATIENT
  Age: 43 Year
  Sex: Female

DRUGS (4)
  1. MOTRIN [Suspect]
     Indication: PAIN
     Dosage: 800 MG, EVERY 8 HOURS
     Route: 048
     Dates: start: 20070626, end: 20070727
  2. PROZAC [Concomitant]
     Indication: DEPRESSION
     Dosage: 20 MG, DAILY
     Dates: start: 20061208, end: 20070727
  3. FLEXERIL [Concomitant]
     Indication: MUSCLE SPASMS
     Dosage: 10 MG, THREE TIMES DAILY AS NEEDED
     Dates: start: 20051118, end: 20120803
  4. PERCOCET [Concomitant]
     Indication: PAIN
     Dosage: 5/325 MG, FOUR TIMES DAILY AS NEEDED
     Dates: start: 20070216, end: 20071130

REACTIONS (2)
  - Drug hypersensitivity [Unknown]
  - Abdominal pain upper [Recovered/Resolved]
